FAERS Safety Report 7127491-X (Version None)
Quarter: 2010Q4

REPORT INFORMATION
  Report Type: 
  Country: None (occurrence: None)
  Receive Date: 20101129
  Receipt Date: 20101118
  Transmission Date: 20110411
  Serious: Yes (Hospitalization)
  Sender: FDA-Public Use
  Company Number: JP-PFIZER INC-2010147602

PATIENT
  Age: 70 Year

DRUGS (1)
  1. SOLU-MEDROL [Suspect]
     Indication: POLYMYOSITIS
     Dosage: UNK
     Dates: start: 20070101

REACTIONS (1)
  - OSTEOARTHRITIS [None]
